FAERS Safety Report 4634232-4 (Version None)
Quarter: 2005Q2

REPORT INFORMATION
  Report Type: 
  Country: None (occurrence: None)
  Receive Date: 20050413
  Receipt Date: 20050329
  Transmission Date: 20051028
  Serious: Yes (Hospitalization)
  Sender: FDA-Public Use
  Company Number: PHBS2005BR04556

PATIENT
  Age: 78 Year
  Sex: Male
  Weight: 79 kg

DRUGS (3)
  1. ATENOLOL [Concomitant]
     Indication: HYPERTENSION
     Route: 048
  2. DIOVAN HCT [Suspect]
     Indication: HYPERTENSION
     Dosage: 1 DF, BID
     Route: 048
  3. SIMVASTATIN [Concomitant]
     Indication: HYPERCHOLESTEROLAEMIA

REACTIONS (5)
  - BLOOD PRESSURE FLUCTUATION [None]
  - BLOOD PRESSURE INCREASED [None]
  - DIFFICULTY IN WALKING [None]
  - EMOTIONAL DISTRESS [None]
  - ISCHAEMIA [None]
